FAERS Safety Report 6235323-7 (Version None)
Quarter: 2009Q2

REPORT INFORMATION
  Report Type: 
  Country: None (occurrence: None)
  Receive Date: 20090618
  Receipt Date: 20090608
  Transmission Date: 20091009
  Serious: Yes (Death, Hospitalization)
  Sender: FDA-Public Use
  Company Number: US-BAXTER-2009BH009576

PATIENT
  Age: 18 Year
  Sex: Female

DRUGS (1)
  1. DIANEAL [Suspect]
     Indication: PERITONEAL DIALYSIS
     Route: 033
     Dates: start: 20090101, end: 20090501

REACTIONS (3)
  - DEATH [None]
  - FLUID OVERLOAD [None]
  - SYSTEMIC LUPUS ERYTHEMATOSUS [None]
